FAERS Safety Report 8958551 (Version 1)
Quarter: 2012Q4

REPORT INFORMATION
  Report Type: Spontaneous
  Country: GB (occurrence: None)
  Receive Date: 20121203
  Receipt Date: 20121203
  Transmission Date: 20130627
  Serious: Yes (Hospitalization)
  Sender: FDA-Public Use
  Company Number: DSA_61105_2012

PATIENT
  Age: 62 Year
  Sex: Male

DRUGS (4)
  1. ENALAPRIL MALEATE [Suspect]
     Indication: DRUG
     Dosage: (40  mg   QD   Oral)
 (Unknown  until not continuing)
     Route: 048
  2. ATENOLOL [Suspect]
     Dosage: (Unknown until not continuing)
     Route: 048
  3. BENDROFLUMETHIAZIDE [Suspect]
     Dosage: (2.5 mg  QD  Oral)
(Unknown)
     Route: 048
  4. SERTRALINE HYDROCHLORIDE [Suspect]
     Route: 048
     Dates: start: 201210, end: 20121102

REACTIONS (1)
  - Inappropriate antidiuretic hormone secretion [None]
